FAERS Safety Report 10921105 (Version 2)
Quarter: 2015Q2

REPORT INFORMATION
  Report Type: Report from Study
  Country: JP (occurrence: JP)
  Receive Date: 20150317
  Receipt Date: 20150522
  Transmission Date: 20150821
  Serious: Yes (Hospitalization)
  Sender: FDA-Public Use
  Company Number: JP-SA-2014SA169455

PATIENT
  Age: 72 Year
  Sex: Male
  Weight: 38.7 kg

DRUGS (10)
  1. NORMAL SALINE [Concomitant]
     Active Substance: SODIUM CHLORIDE
     Indication: PREMEDICATION
     Route: 042
  2. GASTER [Concomitant]
     Active Substance: FAMOTIDINE
     Indication: PREMEDICATION
     Route: 042
  3. JEVTANA [Suspect]
     Active Substance: CABAZITAXEL
     Indication: PROSTATE CANCER
     Dosage: JEVTANA 60MG (CABAZITAXEL)
     Route: 042
     Dates: start: 20150203, end: 20150203
  4. HISHIPHAGEN-C [Concomitant]
     Route: 042
     Dates: start: 20141205, end: 20141208
  5. POLARAMINE [Concomitant]
     Active Substance: DEXCHLORPHENIRAMINE MALEATE
     Indication: PREMEDICATION
     Route: 042
  6. ZOLEDRONIC ACID [Concomitant]
     Active Substance: ZOLEDRONIC ACID
     Indication: PROSTATE CANCER
  7. PREDONINE [Concomitant]
     Active Substance: PREDNISOLONE\PREDNISOLONE ACETATE\PREDNISOLONE SODIUM SUCCINATE
     Indication: PROSTATE CANCER
     Dates: start: 20141127
  8. JEVTANA [Suspect]
     Active Substance: CABAZITAXEL
     Indication: PROSTATE CANCER
     Dosage: JEVTANA 60MG (CABAZITAXEL)
     Route: 042
     Dates: start: 20141127, end: 20141127
  9. DEXAMETHASONE. [Concomitant]
     Active Substance: DEXAMETHASONE
     Indication: PROSTATE CANCER
  10. DEXART [Concomitant]
     Active Substance: DEXAMETHASONE SODIUM PHOSPHATE
     Indication: PREMEDICATION
     Route: 042

REACTIONS (9)
  - Pyrexia [Recovered/Resolved]
  - Malaise [Unknown]
  - Vomiting [Unknown]
  - Febrile neutropenia [Recovered/Resolved]
  - Neutropenia [Recovered/Resolved]
  - Hepatic function abnormal [Recovering/Resolving]
  - White blood cell count decreased [Not Recovered/Not Resolved]
  - Hypokalaemia [Recovered/Resolved]
  - Nausea [Unknown]

NARRATIVE: CASE EVENT DATE: 201412
